FAERS Safety Report 23745651 (Version 2)
Quarter: 2024Q2

REPORT INFORMATION
  Report Type: Spontaneous
  Country: US (occurrence: US)
  Receive Date: 20240416
  Receipt Date: 20240430
  Transmission Date: 20240715
  Serious: No
  Sender: FDA-Public Use
  Company Number: US-HALEON-2166691

PATIENT

DRUGS (1)
  1. METHYLCELLULOSES [Suspect]
     Active Substance: METHYLCELLULOSES
     Indication: Product used for unknown indication
     Dosage: EXPDATE:202706EXPDATE:202706

REACTIONS (3)
  - Constipation [Unknown]
  - Drug effect less than expected [Unknown]
  - Product complaint [Unknown]
